FAERS Safety Report 5594049-3 (Version None)
Quarter: 2008Q1

REPORT INFORMATION
  Report Type: 
  Country: None (occurrence: None)
  Receive Date: 20080116
  Receipt Date: 20080109
  Transmission Date: 20080703
  Serious: Yes (Hospitalization)
  Sender: FDA-Public Use
  Company Number: FR-PFIZER INC-2008002986

PATIENT
  Sex: Female

DRUGS (8)
  1. SOLU-MEDROL [Suspect]
     Indication: COUGH
     Dosage: TEXT:1 DF DAILY
     Route: 030
     Dates: start: 20070521, end: 20070521
  2. ACETAMINOPHEN [Concomitant]
     Route: 048
  3. LEVOTHYROXINE SODIUM [Concomitant]
     Route: 048
  4. NICORANDIL [Concomitant]
     Route: 048
  5. AMIODARONE HCL [Concomitant]
     Route: 048
  6. RAMIPRIL [Concomitant]
     Route: 048
  7. ALLOPURINOL [Concomitant]
     Route: 048
  8. FUROSEMIDE [Concomitant]
     Route: 048

REACTIONS (1)
  - MALAISE [None]
